FAERS Safety Report 6691480-X (Version None)
Quarter: 2010Q2

REPORT INFORMATION
  Report Type: 
  Country: None (occurrence: None)
  Receive Date: 20100422
  Receipt Date: 20100415
  Transmission Date: 20101027
  Serious: Yes (Death, Hospitalization, Other)
  Sender: FDA-Public Use
  Company Number: DE-CELGENEUS-062-21880-09112096

PATIENT
  Age: 74 Year
  Sex: Female
  Weight: 60 kg

DRUGS (3)
  1. REVLIMID [Suspect]
     Indication: MULTIPLE MYELOMA
     Route: 048
     Dates: start: 20090724, end: 20090813
  2. REVLIMID [Suspect]
     Route: 048
     Dates: start: 20090525, end: 20090614
  3. REVLIMID [Suspect]
     Route: 048
     Dates: start: 20090330, end: 20090419

REACTIONS (2)
  - DISTURBANCE IN ATTENTION [None]
  - UROSEPSIS [None]
